FAERS Safety Report 24759947 (Version 3)
Quarter: 2025Q1

REPORT INFORMATION
  Report Type: Report from Study
  Country: CN (occurrence: CN)
  Receive Date: 20241220
  Receipt Date: 20250206
  Transmission Date: 20250408
  Serious: Yes (Life-Threatening)
  Sender: ROCHE
  Company Number: CN-ROCHE-10000158474

PATIENT
  Age: 58 Year
  Sex: Male
  Weight: 76 kg

DRUGS (43)
  1. POLATUZUMAB VEDOTIN [Suspect]
     Active Substance: POLATUZUMAB VEDOTIN
     Indication: Diffuse large B-cell lymphoma
     Route: 040
     Dates: start: 20240421, end: 20240421
  2. POLATUZUMAB VEDOTIN [Suspect]
     Active Substance: POLATUZUMAB VEDOTIN
     Route: 040
     Dates: start: 20240714, end: 20240714
  3. RITUXIMAB [Suspect]
     Active Substance: RITUXIMAB
     Indication: Diffuse large B-cell lymphoma
     Route: 040
     Dates: start: 20240420, end: 20240420
  4. RITUXIMAB [Suspect]
     Active Substance: RITUXIMAB
     Route: 040
     Dates: start: 20240713, end: 20240713
  5. CYCLOPHOSPHAMIDE [Suspect]
     Active Substance: CYCLOPHOSPHAMIDE
     Indication: Diffuse large B-cell lymphoma
     Route: 040
     Dates: start: 20240421, end: 20240421
  6. CYCLOPHOSPHAMIDE [Suspect]
     Active Substance: CYCLOPHOSPHAMIDE
     Route: 040
     Dates: start: 20240714, end: 20240714
  7. PREDNISONE [Suspect]
     Active Substance: PREDNISONE
     Indication: Diffuse large B-cell lymphoma
     Route: 048
     Dates: start: 20240421, end: 20240425
  8. PREDNISONE [Suspect]
     Active Substance: PREDNISONE
     Route: 048
     Dates: start: 20240714, end: 20240718
  9. ACALABRUTINIB [Suspect]
     Active Substance: ACALABRUTINIB
     Indication: Diffuse large B-cell lymphoma
     Route: 048
     Dates: start: 20240713, end: 20240802
  10. ACALABRUTINIB [Suspect]
     Active Substance: ACALABRUTINIB
     Route: 048
     Dates: start: 20240615, end: 20240712
  11. DOXORUBICIN HYDROCHLORIDE [Suspect]
     Active Substance: DOXORUBICIN HYDROCHLORIDE
     Indication: Diffuse large B-cell lymphoma
     Route: 040
     Dates: start: 20240714, end: 20240714
  12. DOXORUBICIN HYDROCHLORIDE [Suspect]
     Active Substance: DOXORUBICIN HYDROCHLORIDE
     Route: 040
     Dates: start: 20240421, end: 20240421
  13. Rabeprazole sodium enteric capsules [Concomitant]
     Route: 048
     Dates: start: 20240417
  14. Rabeprazole sodium enteric capsules [Concomitant]
     Route: 048
     Dates: start: 20240716, end: 20240718
  15. Rabeprazole sodium enteric capsules [Concomitant]
     Dosage: FOR STOMACH PROTECTION
     Route: 048
     Dates: start: 20240519
  16. Rabeprazole sodium enteric capsules [Concomitant]
     Dosage: FOR STOMACH PROTECTION
     Route: 048
     Dates: start: 20240814, end: 20240818
  17. Rabeprazole sodium enteric capsules [Concomitant]
     Dosage: FOR STOMACH PROTECTION
     Route: 048
     Dates: start: 20240914, end: 20240914
  18. Cefaclor extended-release tablets [Concomitant]
     Indication: Infection
     Route: 048
     Dates: start: 20240424
  19. Entecavir tablets [Concomitant]
     Dosage: FOR LIVER PROTECTION
     Route: 048
     Dates: start: 20240424
  20. Entecavir tablets [Concomitant]
     Route: 048
     Dates: start: 20240712
  21. Diammonium glycyrrhizinate enteric capsule [Concomitant]
     Dosage: FOR LIVER PROTECTION
     Route: 048
     Dates: start: 20240424
  22. Metoprolol succinate sustained release tablets [Concomitant]
     Route: 048
     Dates: start: 20240419
  23. Mecobalamine tablets [Concomitant]
     Route: 048
     Dates: start: 20240613
  24. Mecobalamine tablets [Concomitant]
     Route: 048
     Dates: start: 20240613
  25. PROMETHAZINE [Concomitant]
     Active Substance: PROMETHAZINE HYDROCHLORIDE
     Route: 048
     Dates: start: 20240713, end: 20240713
  26. PROMETHAZINE [Concomitant]
     Active Substance: PROMETHAZINE HYDROCHLORIDE
     Route: 030
     Dates: start: 20240813, end: 20240814
  27. PROMETHAZINE [Concomitant]
     Active Substance: PROMETHAZINE HYDROCHLORIDE
     Route: 030
     Dates: start: 20240914, end: 20240915
  28. METHYLPREDNISOLONE SODIUM SUCCINATE [Concomitant]
     Active Substance: METHYLPREDNISOLONE SODIUM SUCCINATE
     Indication: Infection
     Route: 040
     Dates: start: 20240713, end: 20240713
  29. METHYLPREDNISOLONE SODIUM SUCCINATE [Concomitant]
     Active Substance: METHYLPREDNISOLONE SODIUM SUCCINATE
     Route: 040
     Dates: start: 20240813, end: 20240813
  30. METHYLPREDNISOLONE SODIUM SUCCINATE [Concomitant]
     Active Substance: METHYLPREDNISOLONE SODIUM SUCCINATE
     Route: 040
     Dates: start: 20240914, end: 20240914
  31. INSULIN HUMAN [Concomitant]
     Active Substance: INSULIN HUMAN
     Route: 040
     Dates: start: 20240713, end: 20240713
  32. INSULIN HUMAN [Concomitant]
     Active Substance: INSULIN HUMAN
     Route: 040
     Dates: start: 20240814, end: 20240814
  33. METHOTREXATE [Concomitant]
     Active Substance: METHOTREXATE
     Route: 037
     Dates: start: 20240711, end: 20240711
  34. METHOTREXATE [Concomitant]
     Active Substance: METHOTREXATE
     Route: 037
     Dates: start: 20240812, end: 20240812
  35. CYTARABINE HYDROCHLORIDE [Concomitant]
     Active Substance: CYTARABINE HYDROCHLORIDE
     Route: 037
     Dates: start: 20240711, end: 20240711
  36. CYTARABINE HYDROCHLORIDE [Concomitant]
     Active Substance: CYTARABINE HYDROCHLORIDE
     Route: 037
     Dates: start: 20240812, end: 20240812
  37. Omeprazole enteric-coated capsules [Concomitant]
     Route: 048
     Dates: start: 20240813, end: 20240813
  38. Omeprazole enteric-coated capsules [Concomitant]
     Route: 048
     Dates: start: 20240914, end: 20240914
  39. Palonosetron hydrochloride capsules [Concomitant]
     Route: 048
     Dates: start: 20240813, end: 20240813
  40. Compound acetaminophen tablets [Concomitant]
     Route: 048
     Dates: start: 20240814, end: 20240814
  41. SODIUM BICARBONATE [Concomitant]
     Active Substance: SODIUM BICARBONATE
     Route: 040
     Dates: start: 20240814, end: 20240814
  42. DEXAMETHASONE SODIUM PHOSPHATE [Concomitant]
     Active Substance: DEXAMETHASONE SODIUM PHOSPHATE
     Route: 037
     Dates: start: 20240812, end: 20240812
  43. DEXAMETHASONE SODIUM PHOSPHATE [Concomitant]
     Active Substance: DEXAMETHASONE SODIUM PHOSPHATE
     Route: 037
     Dates: start: 20240711, end: 20240711

REACTIONS (1)
  - Myelosuppression [Not Recovered/Not Resolved]

NARRATIVE: CASE EVENT DATE: 20240801
